FAERS Safety Report 5995421-X (Version None)
Quarter: 2008Q4

REPORT INFORMATION
  Report Type: 
  Country: None (occurrence: None)
  Receive Date: 20081212
  Receipt Date: 20080929
  Transmission Date: 20090506
  Serious: No
  Sender: FDA-Public Use
  Company Number: US-ABBOTT-08P-163-0478807-00

PATIENT
  Sex: Female
  Weight: 99.426 kg

DRUGS (11)
  1. HUMIRA [Suspect]
     Indication: CROHN'S DISEASE
     Dates: start: 20080926, end: 20080926
  2. HUMIRA [Suspect]
  3. HUMIRA [Suspect]
  4. TRAMADOL HCL [Concomitant]
     Indication: PAIN
  5. AZATHIOPRINE [Concomitant]
     Indication: CROHN'S DISEASE
  6. PREDNISONE TAB [Concomitant]
     Indication: CROHN'S DISEASE
  7. CELECOXIB [Concomitant]
     Indication: OSTEOARTHRITIS
  8. OMEPRAZOLE [Concomitant]
     Indication: GASTROOESOPHAGEAL REFLUX DISEASE
  9. MULTI-VITAMIN [Concomitant]
     Indication: DRUG USE FOR UNKNOWN INDICATION
  10. FEXOFENADINE [Concomitant]
     Indication: HYPERSENSITIVITY
  11. COLESEVELAM HYDROCHLORIDE [Concomitant]
     Indication: DIARRHOEA

REACTIONS (4)
  - CROHN'S DISEASE [None]
  - FATIGUE [None]
  - INJECTION SITE PAIN [None]
  - WEIGHT DECREASED [None]
